FAERS Safety Report 9158389 (Version 1)
Quarter: 2013Q1

REPORT INFORMATION
  Report Type: Spontaneous
  Country: DK (occurrence: None)
  Receive Date: 20130211
  Receipt Date: 20130211
  Transmission Date: 20140127
  Serious: No
  Sender: FDA-Public Use
  Company Number: 2013MA000868

PATIENT
  Age: 84 Year
  Sex: Male

DRUGS (7)
  1. RAMIPRIL [Suspect]
     Dates: start: 201110, end: 20120625
  2. LANSOPRAZOLE [Concomitant]
  3. FOLIC ACID [Concomitant]
  4. ZOPICLONE [Concomitant]
  5. MACROGOL [Concomitant]
  6. PARACETAMOL [Concomitant]
  7. PREV MEDS [Concomitant]

REACTIONS (4)
  - Renal failure acute [None]
  - Dehydration [None]
  - Abdominal pain [None]
  - Renal failure acute [None]
